FAERS Safety Report 25884383 (Version 1)
Quarter: 2025Q4

REPORT INFORMATION
  Report Type: Report from Study
  Country: IN (occurrence: IN)
  Receive Date: 20251006
  Receipt Date: 20251006
  Transmission Date: 20260117
  Serious: Yes (Other)
  Sender: ROCHE
  Company Number: IN-ROCHE-10000399452

PATIENT
  Age: 15 Year
  Sex: Female

DRUGS (1)
  1. ACTEMRA [Suspect]
     Active Substance: TOCILIZUMAB
     Indication: Juvenile idiopathic arthritis
     Dosage: FREQUENCY: 3
     Route: 042
     Dates: start: 20210618

REACTIONS (1)
  - Still^s disease [Recovered/Resolved with Sequelae]
